FAERS Safety Report 13257322 (Version 1)
Quarter: 2017Q1

REPORT INFORMATION
  Report Type: Report from Study
  Country: US (occurrence: US)
  Receive Date: 20170221
  Receipt Date: 20170221
  Transmission Date: 20170428
  Serious: Yes (Death)
  Sender: FDA-Public Use
  Company Number: US-EXELIXIS-CABO-16007797

PATIENT
  Age: 72 Year
  Sex: Male

DRUGS (17)
  1. ALEVE [Concomitant]
     Active Substance: NAPROXEN SODIUM
  2. FINASTERIDE. [Concomitant]
     Active Substance: FINASTERIDE
  3. METOPROLOL TARTRATE. [Concomitant]
     Active Substance: METOPROLOL TARTRATE
  4. MULTIVITAMIN [Concomitant]
     Active Substance: VITAMINS
  5. GLUCOSAMINE W/CHONDROITIN COMPLEX [Concomitant]
  6. IRON [Concomitant]
     Active Substance: IRON
  7. SUTENT [Concomitant]
     Active Substance: SUNITINIB MALATE
  8. SAW PALMETTO [Concomitant]
     Active Substance: SAW PALMETTO
  9. SIMVASTATIN. [Concomitant]
     Active Substance: SIMVASTATIN
  10. ANORO ELLIPTA [Concomitant]
     Active Substance: UMECLIDINIUM BROMIDE\VILANTEROL TRIFENATATE
  11. FEXOFENADINE [Concomitant]
     Active Substance: FEXOFENADINE\FEXOFENADINE HYDROCHLORIDE
  12. GINKGO BILOBA [Concomitant]
     Active Substance: GINKGO
  13. TAMSULOSIN [Concomitant]
     Active Substance: TAMSULOSIN
  14. VITAMIN E [Concomitant]
     Active Substance: .ALPHA.-TOCOPHEROL
  15. CABOMETYX [Suspect]
     Active Substance: CABOZANTINIB S-MALATE
     Indication: RENAL CANCER
     Dosage: 40 MG, QD
     Route: 048
     Dates: start: 20160916, end: 20161230
  16. FLONASE [Concomitant]
     Active Substance: FLUTICASONE PROPIONATE
  17. LISINOPRIL. [Concomitant]
     Active Substance: LISINOPRIL

REACTIONS (1)
  - Death [Fatal]

NARRATIVE: CASE EVENT DATE: 20170125
